FAERS Safety Report 5012590-9 (Version None)
Quarter: 2006Q2

REPORT INFORMATION
  Report Type: 
  Country: None (occurrence: None)
  Receive Date: 20060411
  Receipt Date: 20060105
  Transmission Date: 20061013
  Serious: Yes (Hospitalization)
  Sender: FDA-Public Use
  Company Number: 2006S1000002

PATIENT
  Age: 41 Year
  Sex: Female
  Weight: 64 kg

DRUGS (6)
  1. CUBICIN [Suspect]
     Indication: STAPHYLOCOCCAL BACTERAEMIA
     Dosage: 6 MG/KG;Q24H;IV
     Route: 042
     Dates: start: 20051229, end: 20060106
  2. VANCOMYCIN [Concomitant]
  3. ACETAMINOPHEN [Concomitant]
  4. PROMETHAZINE [Concomitant]
  5. ONDANSETRON HCL [Concomitant]
  6. STEROID [Concomitant]

REACTIONS (7)
  - BLOOD CREATININE INCREASED [None]
  - DEHYDRATION [None]
  - EOSINOPHILIA [None]
  - HYPERSENSITIVITY [None]
  - PRURITUS GENERALISED [None]
  - RASH ERYTHEMATOUS [None]
  - RASH MACULO-PAPULAR [None]
